FAERS Safety Report 14129225 (Version 1)
Quarter: 2017Q4

REPORT INFORMATION
  Report Type: Spontaneous
  Country: FR (occurrence: FR)
  Receive Date: 20171026
  Receipt Date: 20171026
  Transmission Date: 20180321
  Serious: Yes (Other)
  Sender: FDA-Public Use
  Company Number: FR-MERCK KGAA-2031557

PATIENT
  Age: 48 Year
  Sex: Male

DRUGS (5)
  1. HYDROCORTISONE. [Concomitant]
     Active Substance: HYDROCORTISONE
  2. BETAMETHASONE. [Concomitant]
     Active Substance: BETAMETHASONE
  3. RIVOTRIL [Concomitant]
     Active Substance: CLONAZEPAM
  4. KLIPAL [Concomitant]
     Active Substance: ACETAMINOPHEN\CODEINE PHOSPHATE
  5. NOVOTHYROX [Suspect]
     Active Substance: LEVOTHYROXINE SODIUM
     Indication: PRODUCT USED FOR UNKNOWN INDICATION
     Dates: start: 201707

REACTIONS (14)
  - Paraesthesia [Unknown]
  - Torsade de pointes [Unknown]
  - Hypokinesia [Unknown]
  - Tri-iodothyronine abnormal [Unknown]
  - Tachycardia [Unknown]
  - Gait disturbance [Unknown]
  - Thyroxine abnormal [Unknown]
  - Temperature intolerance [Unknown]
  - Joint stiffness [Unknown]
  - Tremor [Unknown]
  - Muscle spasms [Unknown]
  - Pain [Unknown]
  - Weight increased [Unknown]
  - Blood pressure increased [Unknown]

NARRATIVE: CASE EVENT DATE: 2017
